FAERS Safety Report 6144775-2 (Version None)
Quarter: 2009Q2

REPORT INFORMATION
  Report Type: 
  Country: None (occurrence: None)
  Receive Date: 20090406
  Receipt Date: 20090330
  Transmission Date: 20091009
  Serious: Yes (Other)
  Sender: FDA-Public Use
  Company Number: DE-B.I. PHARMACEUTICALS,INC./RIDGEFIELD-2009-DE-02689DE

PATIENT
  Sex: Female

DRUGS (3)
  1. SIFROL [Suspect]
     Dosage: THERAPEUTIC DOSAGE
     Route: 048
  2. CARBAMAZEPINE [Suspect]
     Dosage: UNKNOWN AMOUNT / POISON INGESTION WITH TOXIN EVIDENCE
     Route: 048
  3. TILIDIN [Suspect]
     Dosage: THERAPEUTIC DOSAGE
     Route: 048

REACTIONS (2)
  - COORDINATION ABNORMAL [None]
  - SPEECH DISORDER [None]
